FAERS Safety Report 23486330 (Version 1)
Quarter: 2024Q1

REPORT INFORMATION
  Report Type: Other
  Country: None (occurrence: IN)
  Receive Date: 20240206
  Receipt Date: 20240206
  Transmission Date: 20240410
  Serious: Yes (Other)
  Sender: FDA-Public Use
  Company Number: IN-BIOLOGICAL E. LTD-2152666

PATIENT
  Age: 22 Year
  Sex: Female

DRUGS (1)
  1. PANTOPRAZOLE SODIUM [Suspect]
     Active Substance: PANTOPRAZOLE SODIUM
     Indication: Gastritis
     Route: 065

REACTIONS (3)
  - Toxic optic neuropathy [Unknown]
  - Intentional product use issue [Unknown]
  - Self-medication [Unknown]
